FAERS Safety Report 9386889 (Version 1)
Quarter: 2013Q3

REPORT INFORMATION
  Report Type: Spontaneous
  Country: AU (occurrence: AU)
  Receive Date: 20130708
  Receipt Date: 20130708
  Transmission Date: 20140515
  Serious: Yes (Other)
  Sender: FDA-Public Use
  Company Number: PHHY2013AU071364

PATIENT
  Age: 53 Year
  Sex: Male

DRUGS (2)
  1. ZOLEDRONIC ACID [Suspect]
     Dosage: UNK UKN, UNK
  2. PREDNISOLONE [Suspect]
     Dosage: UNK UKN, UNK

REACTIONS (9)
  - Oesophageal candidiasis [Unknown]
  - Varicella [Unknown]
  - Duodenitis [Unknown]
  - Ileus [Unknown]
  - Melaena [Unknown]
  - Gastritis [Unknown]
  - Immunoglobulins decreased [Unknown]
  - Weight decreased [Unknown]
  - Abdominal pain upper [Unknown]
